FAERS Safety Report 25037236 (Version 1)
Quarter: 2025Q1

REPORT INFORMATION
  Report Type: Spontaneous
  Country: PK (occurrence: PK)
  Receive Date: 20250304
  Receipt Date: 20250304
  Transmission Date: 20250408
  Serious: Yes (Other)
  Sender: PFIZER
  Company Number: PK-PFIZER INC-PV202200103607

PATIENT
  Age: 53 Year
  Sex: Female

DRUGS (14)
  1. IBRANCE [Suspect]
     Active Substance: PALBOCICLIB
     Indication: Breast cancer metastatic
     Route: 048
     Dates: start: 20220726
  2. FEMARA [Concomitant]
     Active Substance: LETROZOLE
     Dates: start: 202207
  3. FEMARA [Concomitant]
     Active Substance: LETROZOLE
     Dosage: 2.5 MG, 1X/DAY (1 TABLET DAILY)
  4. UNSPECIFIED INGREDIENT [Concomitant]
     Active Substance: UNSPECIFIED INGREDIENT
  5. ZOLEDRONIC ACID [Concomitant]
     Active Substance: ZOLEDRONIC ACID
     Route: 042
  6. DEXAMETHASONE [Concomitant]
     Active Substance: DEXAMETHASONE
  7. NUBEROL [Concomitant]
  8. CHOLECALCIFEROL [Concomitant]
     Active Substance: CHOLECALCIFEROL
  9. MONTELUKAST SODIUM [Concomitant]
     Active Substance: MONTELUKAST SODIUM
     Dosage: 1 DF, DAILY
  10. AMOXICILLIN [Concomitant]
     Active Substance: AMOXICILLIN
     Dosage: UNK, 3X/DAY(1+1+1)
  11. QALSAN D [Concomitant]
     Dosage: UNK, 2X/DAY(1+0+1)
  12. SOFTIN [Concomitant]
     Dosage: UNK, 2X/DAY(1+0+1)
  13. HYDROCORTISONE [Concomitant]
     Active Substance: HYDROCORTISONE
  14. KENALOG [Concomitant]
     Active Substance: TRIAMCINOLONE ACETONIDE

REACTIONS (18)
  - Lower respiratory tract infection [Recovered/Resolved]
  - Breast cancer recurrent [Not Recovered/Not Resolved]
  - Metastasis [Unknown]
  - Blood glucose increased [Unknown]
  - Back pain [Unknown]
  - Osteopenia [Unknown]
  - Sciatica [Unknown]
  - Pain in extremity [Unknown]
  - Influenza [Recovering/Resolving]
  - Tooth disorder [Unknown]
  - Rhinitis allergic [Unknown]
  - Wound [Unknown]
  - Decubitus ulcer [Unknown]
  - Respiratory tract infection [Unknown]
  - Glycosylated haemoglobin increased [Unknown]
  - Inflammation [Unknown]
  - Product prescribing error [Unknown]
  - Cough [Not Recovered/Not Resolved]
